FAERS Safety Report 20326352 (Version 1)
Quarter: 2022Q1

REPORT INFORMATION
  Report Type: Spontaneous
  Country: ES (occurrence: ES)
  Receive Date: 20220112
  Receipt Date: 20220112
  Transmission Date: 20220423
  Serious: Yes (Other)
  Sender: FDA-Public Use
  Company Number: ES-AMGEN-ESPSP2022003886

PATIENT

DRUGS (2)
  1. EVOLOCUMAB [Suspect]
     Active Substance: EVOLOCUMAB
     Indication: Type IIa hyperlipidaemia
     Dosage: 140 MILLIGRAM, Q2WK
     Route: 065
  2. ASPIRIN [Concomitant]
     Active Substance: ASPIRIN
     Dosage: UNK

REACTIONS (16)
  - Acute myocardial infarction [Unknown]
  - Angina unstable [Unknown]
  - Coronary revascularisation [Unknown]
  - Cerebrovascular accident [Unknown]
  - Therapeutic response decreased [Unknown]
  - Treatment failure [Unknown]
  - Treatment noncompliance [Unknown]
  - Drug intolerance [Unknown]
  - Respiratory disorder [Unknown]
  - Amnesia [Unknown]
  - Hypertransaminasaemia [Unknown]
  - Fatigue [Unknown]
  - Influenza like illness [Unknown]
  - Injection site pain [Unknown]
  - Myalgia [Unknown]
  - Arthralgia [Unknown]
